FAERS Safety Report 8029111-9 (Version None)
Quarter: 2012Q1

REPORT INFORMATION
  Report Type: 
  Country: None (occurrence: None)
  Receive Date: 20120106
  Receipt Date: 20120103
  Transmission Date: 20120608
  Serious: Yes (Other)
  Sender: FDA-Public Use
  Company Number: BR-ABBOTT-11P-020-0802867-00

PATIENT
  Sex: Male
  Weight: 62 kg

DRUGS (4)
  1. INSULIN [Concomitant]
     Indication: DIABETES MELLITUS
     Dosage: HUMULIN 28 IU; DAILY DOSE: 28 INTERNATIONAL UNIT(S)
     Route: 058
     Dates: start: 19970101
  2. CARBAMAZEPINE [Concomitant]
     Indication: NEUROPATHY PERIPHERAL
     Dosage: DAILY DOSE: 1 DOSAGE FORM
     Route: 048
     Dates: start: 20040101
  3. CREON [Suspect]
     Indication: PANCREATITIS CHRONIC
     Dosage: DAILY DOSE: 6 DOSAGE FORM
     Route: 048
     Dates: start: 19960101
  4. INSULIN [Concomitant]
     Dosage: HUMULIN 10 IU; DAILY DOSE: 20 INTERNATIONAL UNIT(S)
     Route: 058
     Dates: start: 19970101

REACTIONS (2)
  - COLITIS [None]
  - DIARRHOEA [None]
